FAERS Safety Report 5386811-7 (Version None)
Quarter: 2007Q3

REPORT INFORMATION
  Report Type: 
  Country: None (occurrence: None)
  Receive Date: 20070713
  Receipt Date: 20070702
  Transmission Date: 20080115
  Serious: Yes (Hospitalization, Other)
  Sender: FDA-Public Use
  Company Number: US-PFIZER INC-2006147038

PATIENT
  Sex: Male
  Weight: 109.8 kg

DRUGS (8)
  1. CELEBREX [Suspect]
     Indication: PAIN
     Dates: start: 20010101, end: 20030201
  2. BEXTRA [Suspect]
     Dates: start: 20020101
  3. VIOXX [Suspect]
     Indication: PAIN IN EXTREMITY
     Route: 048
     Dates: start: 19990801, end: 20030225
  4. VIOXX [Suspect]
     Indication: OSTEOARTHRITIS
  5. ZESTRIL [Concomitant]
     Indication: HYPERTENSION
  6. CARDIZEM [Concomitant]
     Indication: CHEST PAIN
  7. DILTIAZEM [Concomitant]
     Indication: CHEST PAIN
  8. SYNTHROID [Concomitant]
     Indication: HORMONE REPLACEMENT THERAPY

REACTIONS (1)
  - CEREBROVASCULAR ACCIDENT [None]
